FAERS Safety Report 6168693-9 (Version None)
Quarter: 2009Q2

REPORT INFORMATION
  Report Type: 
  Country: None (occurrence: None)
  Receive Date: 20090427
  Receipt Date: 20090415
  Transmission Date: 20091009
  Serious: Yes (Other)
  Sender: FDA-Public Use
  Company Number: BR-PFIZER INC-2009199411

PATIENT

DRUGS (6)
  1. MARAVIROC [Suspect]
     Indication: HIV INFECTION
     Dosage: 150 MG, 2X/DAY
     Route: 048
     Dates: start: 20071019
  2. LAMIVUDINE [Concomitant]
     Dosage: UNK
     Route: 048
     Dates: start: 20050114
  3. TENOFOVIR [Concomitant]
     Dosage: UNK
     Route: 048
     Dates: start: 20040103
  4. LOPINAVIR [Concomitant]
     Dosage: UNK
     Route: 048
     Dates: start: 20070813
  5. RITONAVIR [Concomitant]
     Dosage: UNK
     Route: 048
     Dates: start: 20070813
  6. ENFUVIRTIDE [Concomitant]
     Dosage: UNK
     Route: 048
     Dates: start: 20071126

REACTIONS (1)
  - HODGKIN'S DISEASE [None]
